FAERS Safety Report 6801000-4 (Version None)
Quarter: 2010Q2

REPORT INFORMATION
  Report Type: 
  Country: None (occurrence: None)
  Receive Date: 20100624
  Receipt Date: 20100609
  Transmission Date: 20101027
  Serious: Yes (Death, Other)
  Sender: FDA-Public Use
  Company Number: 2009000163

PATIENT
  Age: 80 Year
  Sex: Male
  Weight: 67.5 kg

DRUGS (12)
  1. ERLOTINIB (ERLOTINIB) (TABLET) (ERLOTINIB) [Suspect]
     Indication: LUNG ADENOCARCINOMA
     Dosage: (150 MG, QD), ORAL; (150 MG, QOD), ORAL
     Route: 048
     Dates: start: 20081016, end: 20081218
  2. ERLOTINIB (ERLOTINIB) (TABLET) (ERLOTINIB) [Suspect]
     Indication: LUNG ADENOCARCINOMA
     Dosage: (150 MG, QD), ORAL; (150 MG, QOD), ORAL
     Route: 048
     Dates: start: 20081105, end: 20081218
  3. RABEPRAZOLE SODIUM [Suspect]
     Indication: DRUG USE FOR UNKNOWN INDICATION
     Dosage: (10 MG, QD), ORAL
     Route: 048
     Dates: start: 20081218, end: 20081219
  4. DEPAS (ETIZOLAM) [Concomitant]
  5. PITAVASTATIN [Concomitant]
  6. CANDESARTAN CILEXETIL [Concomitant]
  7. TIZANIDINE HCL [Concomitant]
  8. ZOLPIDEM [Concomitant]
  9. MAGNESIUM OXIDE (MAGNESIUM OXIDE) [Concomitant]
  10. SIGMART (NICORANDIL) [Concomitant]
  11. LORAZEPAM [Concomitant]
  12. SIMVASTATIN [Concomitant]

REACTIONS (9)
  - BLOOD PRESSURE ABNORMAL [None]
  - C-REACTIVE PROTEIN INCREASED [None]
  - DERMATITIS ACNEIFORM [None]
  - ENTEROCOLITIS INFECTIOUS [None]
  - GASTRIC MUCOSAL LESION [None]
  - GASTROENTERITIS [None]
  - NO THERAPEUTIC RESPONSE [None]
  - SEBORRHOEIC DERMATITIS [None]
  - WHITE BLOOD CELL COUNT INCREASED [None]
